FAERS Safety Report 23379792 (Version 3)
Quarter: 2024Q1

REPORT INFORMATION
  Report Type: Spontaneous
  Country: US (occurrence: US)
  Receive Date: 20240108
  Receipt Date: 20240117
  Transmission Date: 20240410
  Serious: Yes (Death)
  Sender: FDA-Public Use
  Company Number: US-PTC THERAPEUTICS INC.-US-2024PTC000015

PATIENT
  Age: 24 Year
  Sex: Male
  Weight: 83.673 kg

DRUGS (3)
  1. EMFLAZA [Suspect]
     Active Substance: DEFLAZACORT
     Indication: Duchenne muscular dystrophy
     Dosage: 18 MG, QD (TOTAL DAILY DOSE ALTERNATES BETWEEN 24 MG AND 21 MG EVERY OTHER DAY)
     Route: 048
  2. EMFLAZA [Suspect]
     Active Substance: DEFLAZACORT
     Indication: Becker^s muscular dystrophy
     Dosage: 6 MG, QOD (TOTAL DAILY DOSE ALTERNATES BETWEEN 24 MG AND 21 MG EVERY OTHER DAY)
     Route: 048
  3. EMFLAZA [Suspect]
     Active Substance: DEFLAZACORT
     Dosage: 3 MG, QOD (TOTAL DAILY DOSE ALTERNATES BETWEEN 24 MG AND 21 MG EVERY OTHER DAY)
     Route: 048

REACTIONS (2)
  - Death [Fatal]
  - Off label use [Unknown]

NARRATIVE: CASE EVENT DATE: 20231225
